FAERS Safety Report 4659645-6 (Version None)
Quarter: 2005Q2

REPORT INFORMATION
  Report Type: 
  Country: None (occurrence: None)
  Receive Date: 20050411
  Receipt Date: 20050201
  Transmission Date: 20051028
  Serious: Yes (Other)
  Sender: FDA-Public Use
  Company Number: A03200402329

PATIENT
  Age: 66 Year
  Sex: Male
  Weight: 70.7611 kg

DRUGS (4)
  1. UROXATRAL [Suspect]
     Indication: BENIGN PROSTATIC HYPERPLASIA
     Dosage: 10 MG OD - ORAL
     Route: 048
     Dates: start: 20040625, end: 20040625
  2. UROXATRAL [Suspect]
     Indication: PROSTATE CANCER
     Dosage: 10 MG OD - ORAL
     Route: 048
     Dates: start: 20040625, end: 20040625
  3. LEVOFLOXACIN [Concomitant]
  4. OXYCODONE AND ACETAMINOPHEN [Concomitant]

REACTIONS (3)
  - BLOOD PRESSURE DECREASED [None]
  - DIZZINESS [None]
  - SYNCOPE [None]
